FAERS Safety Report 10291389 (Version 1)
Quarter: 2014Q3

REPORT INFORMATION
  Report Type: Spontaneous
  Country: BR (occurrence: None)
  Receive Date: 20140708
  Receipt Date: 20140708
  Transmission Date: 20150326
  Serious: Yes (Other)
  Sender: FDA-Public Use
  Company Number: 2014-000788

PATIENT
  Age: 59 Year
  Sex: Female
  Weight: 52 kg

DRUGS (7)
  1. PURAN T4 (LEVOTHYROXINE SODIUM) [Concomitant]
  2. CLOPIDOGREL [Suspect]
     Active Substance: CLOPIDOGREL BISULFATE
     Dates: start: 201305, end: 201311
  3. ACTONEL [Suspect]
     Active Substance: RISEDRONATE SODIUM
     Indication: OSTEOPENIA
     Dosage: 150 MG ONCE MONTHLY WITH WATER, ORAL
     Route: 048
     Dates: start: 201402, end: 201403
  4. RIVOTRIL [Concomitant]
     Active Substance: CLONAZEPAM
  5. LANSOPRAZOLE (LANSOPRAZOLE) [Concomitant]
     Active Substance: LANSOPRAZOLE
  6. ACTONEL [Suspect]
     Active Substance: RISEDRONATE SODIUM
     Route: 048
     Dates: start: 201311
  7. CALCIUM + VITAMIN D /01483701/ (CALCIUM, COLECALCIFEROL) [Suspect]
     Active Substance: CALCIUM\VITAMIN D

REACTIONS (15)
  - Colon adenoma [None]
  - Cyst [None]
  - Toothache [None]
  - Gastric polyps [None]
  - Platelet disorder [None]
  - Headache [None]
  - Weight decreased [None]
  - Gastrointestinal disorder [None]
  - Platelet count decreased [None]
  - Gingival bleeding [None]
  - Pain in extremity [None]
  - Dysplasia [None]
  - Enteritis [None]
  - Heart rate decreased [None]
  - Gastritis [None]

NARRATIVE: CASE EVENT DATE: 201311
